FAERS Safety Report 6066140-9 (Version None)
Quarter: 2009Q1

REPORT INFORMATION
  Report Type: 
  Country: None (occurrence: None)
  Receive Date: 20090205
  Receipt Date: 20090129
  Transmission Date: 20090719
  Serious: Yes (Hospitalization)
  Sender: FDA-Public Use
  Company Number: US-ASTRAZENECA-2009UW02682

PATIENT
  Age: 75 Year
  Sex: Female

DRUGS (1)
  1. TOPROL-XL [Suspect]
     Dates: start: 20060101

REACTIONS (2)
  - CORONARY ARTERY STENOSIS [None]
  - HERPES ZOSTER [None]
